FAERS Safety Report 5358176-8 (Version None)
Quarter: 2007Q2

REPORT INFORMATION
  Report Type: 
  Country: None (occurrence: None)
  Receive Date: 20070530
  Receipt Date: 20061026
  Transmission Date: 20071010
  Serious: Yes (Hospitalization)
  Sender: FDA-Public Use
  Company Number: US200605004584

PATIENT
  Sex: Female
  Weight: 88 kg

DRUGS (3)
  1. ZYPREXA [Suspect]
     Dosage: SEE IMAGE
     Dates: start: 20041101, end: 20050201
  2. CELEXA [Concomitant]
  3. COREG [Concomitant]

REACTIONS (1)
  - DIABETES MELLITUS [None]
